FAERS Safety Report 25460958 (Version 1)
Quarter: 2025Q2

REPORT INFORMATION
  Report Type: Spontaneous
  Country: US (occurrence: None)
  Receive Date: 20250620
  Receipt Date: 20250620
  Transmission Date: 20250717
  Serious: Yes (Hospitalization)
  Sender: FDA-CTU
  Company Number: None

PATIENT
  Sex: Female

DRUGS (6)
  1. DALFAMPRIDINE [Suspect]
     Active Substance: DALFAMPRIDINE
     Indication: Multiple sclerosis
     Route: 048
     Dates: start: 20190207
  2. DIGESTIVE CAP SUPPORT [Concomitant]
  3. VITAMINS [Concomitant]
     Active Substance: VITAMINS
  4. OCREVUS [Concomitant]
     Active Substance: OCRELIZUMAB
  5. HERBALS\TURMERIC [Concomitant]
     Active Substance: HERBALS\TURMERIC
  6. VITAMIN D [Concomitant]
     Active Substance: VITAMIN D NOS

REACTIONS (4)
  - Fall [None]
  - Arthropod bite [None]
  - Infection [None]
  - Muscle spasticity [None]
